FAERS Safety Report 8844611 (Version 1)
Quarter: 2012Q4

REPORT INFORMATION
  Report Type: 
  Country: US (occurrence: None)
  Receive Date: 20121012
  Receipt Date: 20121012
  Transmission Date: 20130627
  Serious: Yes (Hospitalization)
  Sender: FDA-Public Use
  Company Number: 2012SP002962

PATIENT
  Age: 49 Year
  Sex: Female
  Weight: 91 kg

DRUGS (10)
  1. EPIRUBICIN (EPIRUBICIN) (EPIRUBICIN) [Suspect]
     Indication: BREAST CANCER
     Dosage: ;IV
     Route: 042
     Dates: start: 20120202, end: 20120626
  2. FLUOROURACIL (FLUOROURACIL) [Suspect]
     Indication: BREAST CANCER
     Dosage: ;Q3W; IV
     Route: 042
     Dates: start: 20120202, end: 20120626
  3. DOCETAXEL [Suspect]
     Indication: BREAST CANCER
     Dosage: ;IV
     Route: 042
     Dates: start: 20120507, end: 20120618
  4. BEVACIZUMAB [Suspect]
     Indication: BREAST CANCER
     Dosage: 1350 MG;Q3Q;IV
     Route: 042
     Dates: start: 20120202
  5. CYCLOPHOSPHAMIDE [Suspect]
     Dosage: 100 UNK;Q3Q;IV
     Route: 042
     Dates: start: 20120202, end: 20120626
  6. ATORVASTATIN CALCIUM [Concomitant]
  7. EBASTINE [Concomitant]
  8. BUDESONIDE W/FORMOTEROL [Concomitant]
  9. FUMARATE [Concomitant]
  10. FLUTICASONE [Concomitant]

REACTIONS (6)
  - Non-cardiac chest pain [None]
  - Upper respiratory tract infection [None]
  - Infusion related reaction [None]
  - Febrile neutropenia [None]
  - Drug hypersensitivity [None]
  - Cough [None]
